FAERS Safety Report 12869284 (Version 1)
Quarter: 2016Q4

REPORT INFORMATION
  Report Type: Spontaneous
  Country: US (occurrence: US)
  Receive Date: 20161020
  Receipt Date: 20161020
  Transmission Date: 20170207
  Serious: No
  Sender: FDA-Public Use
  Company Number: None

PATIENT
  Age: 18 Year
  Sex: Female
  Weight: 108.9 kg

DRUGS (1)
  1. IOHEXOL GEHEAL [Suspect]
     Active Substance: IOHEXOL
     Dosage: ?          OTHER FREQUENCY:ONCE;?
     Route: 042
     Dates: start: 20160906

REACTIONS (2)
  - Lip swelling [None]
  - Cough [None]

NARRATIVE: CASE EVENT DATE: 20160906
